FAERS Safety Report 25751882 (Version 1)
Quarter: 2025Q3

REPORT INFORMATION
  Report Type: Spontaneous
  Country: US (occurrence: None)
  Receive Date: 20250901
  Receipt Date: 20250901
  Transmission Date: 20251020
  Serious: Yes (Other)
  Sender: FDA-CTU
  Company Number: None

PATIENT
  Age: 35 Year
  Sex: Female
  Weight: 89.55 kg

DRUGS (1)
  1. TIRZEPATIDE [Suspect]
     Active Substance: TIRZEPATIDE
     Indication: Weight decreased
     Dates: start: 20250719, end: 20250825

REACTIONS (4)
  - Injection site rash [None]
  - Headache [None]
  - Vomiting [None]
  - Palpitations [None]

NARRATIVE: CASE EVENT DATE: 20250829
